FAERS Safety Report 9329377 (Version 1)
Quarter: 2013Q2

REPORT INFORMATION
  Report Type: Spontaneous
  Country: US (occurrence: US)
  Receive Date: 20130604
  Receipt Date: 20130604
  Transmission Date: 20140414
  Serious: Yes (Other)
  Sender: FDA-Public Use
  Company Number: US-SANOFI-AVENTIS-2012SA091511

PATIENT
  Age: 64 Year
  Sex: Female
  Weight: 116 kg

DRUGS (7)
  1. LANTUS [Suspect]
     Indication: TYPE 2 DIABETES MELLITUS
     Dosage: DOSE:94 UNIT(S)
     Route: 058
     Dates: start: 1998
  2. LANTUS [Suspect]
     Indication: TYPE 2 DIABETES MELLITUS
     Dosage: DOSE:94 UNIT(S)
     Route: 058
     Dates: start: 1998
  3. LANTUS SOLOSTAR [Suspect]
     Indication: TYPE 2 DIABETES MELLITUS
     Dosage: DOSE:94 UNIT(S)
     Route: 058
  4. LANTUS SOLOSTAR [Suspect]
     Indication: TYPE 2 DIABETES MELLITUS
     Dosage: DOSE:94 UNIT(S)
     Route: 058
  5. SOLOSTAR [Suspect]
     Indication: TYPE 2 DIABETES MELLITUS
  6. SOLOSTAR [Suspect]
     Indication: TYPE 2 DIABETES MELLITUS
  7. HUMALOG [Concomitant]

REACTIONS (2)
  - Drug hypersensitivity [Not Recovered/Not Resolved]
  - Throat tightness [Not Recovered/Not Resolved]
